FAERS Safety Report 19006273 (Version 2)
Quarter: 2021Q2

REPORT INFORMATION
  Report Type: Spontaneous
  Country: DE (occurrence: DE)
  Receive Date: 20210315
  Receipt Date: 20210412
  Transmission Date: 20210717
  Serious: Yes (Hospitalization, Other)
  Sender: FDA-Public Use
  Company Number: DE-AUROBINDO-AUR-APL-2021-009780

PATIENT
  Age: 75 Year
  Sex: Female

DRUGS (12)
  1. DULOXETINE. [Interacting]
     Active Substance: DULOXETINE
     Indication: PRODUCT USED FOR UNKNOWN INDICATION
     Dosage: 30 MILLIGRAM, ONCE A DAY (1?0?0?0)
     Route: 065
  2. RIVASTIGMINE. [Suspect]
     Active Substance: RIVASTIGMINE
     Indication: PRODUCT USED FOR UNKNOWN INDICATION
     Dosage: 9.5 MILLIGRAM, ONCE A DAY (1?0?0?0)
     Route: 065
  3. CARBIDOPA/LEVODOPA [Concomitant]
     Active Substance: CARBIDOPA\LEVODOPA
     Indication: PRODUCT USED FOR UNKNOWN INDICATION
     Dosage: 1 DOSAGE FORM, FOUR TIMES/DAY (25|100 MG, 1?1?1?1)
     Route: 065
  4. CINNARIZIN DIMENHYDRINAT [Concomitant]
     Indication: PRODUCT USED FOR UNKNOWN INDICATION
     Dosage: 1 DOSAGE FORM, 3 TIMES A DAY (20|40 MG, 1?1?1?0,)
     Route: 065
  5. RASAGILINE TABLET [Interacting]
     Active Substance: RASAGILINE
     Indication: PRODUCT USED FOR UNKNOWN INDICATION
     Dosage: 1 MILLIGRAM, ONCE A DAY (1?0?0?0)
     Route: 065
  6. METOPROLOL. [Concomitant]
     Active Substance: METOPROLOL
     Indication: PRODUCT USED FOR UNKNOWN INDICATION
     Dosage: 23.75 MILLIGRAM, ONCE A DAY (1?0?0?0)
     Route: 065
  7. TAPENTADOL [Interacting]
     Active Substance: TAPENTADOL
     Indication: PRODUCT USED FOR UNKNOWN INDICATION
     Dosage: 50 MILLIGRAM, TWO TIMES A DAY (1?0?1?0)
     Route: 065
  8. ROTIGOTINE [Concomitant]
     Active Substance: ROTIGOTINE
     Dosage: 1 DOSAGE FORM, ONCE A DAY (4 MG/D, 1?0?0?0)
     Route: 062
  9. PANTOPRAZOLE [Concomitant]
     Active Substance: PANTOPRAZOLE
     Indication: PRODUCT USED FOR UNKNOWN INDICATION
     Dosage: 40 MILLIGRAM, AS NECESSARY (NEEDS)
     Route: 065
  10. TROSPIUM [Concomitant]
     Active Substance: TROSPIUM
     Indication: PRODUCT USED FOR UNKNOWN INDICATION
     Dosage: 15 MILLIGRAM, TWO TIMES A DAY (0.5?0?0.5?0)
     Route: 065
  11. ROTIGOTINE [Concomitant]
     Active Substance: ROTIGOTINE
     Indication: PRODUCT USED FOR UNKNOWN INDICATION
     Dosage: 1 DOSAGE FORM, ONCE A DAY (8 MG/D, 1?0?0?0)
     Route: 062
  12. VALSARTAN. [Concomitant]
     Active Substance: VALSARTAN
     Indication: PRODUCT USED FOR UNKNOWN INDICATION
     Dosage: 200 MILLIGRAM, ONCE A DAY (80 MG, 0.5?0?2?0)
     Route: 065

REACTIONS (8)
  - Hypertensive crisis [Unknown]
  - Haematemesis [Unknown]
  - Hypertension [Unknown]
  - Tremor [Unknown]
  - Product prescribing error [Unknown]
  - Pallor [Unknown]
  - Asthenia [Unknown]
  - Labelled drug-drug interaction medication error [Unknown]
